FAERS Safety Report 13376907 (Version 1)
Quarter: 2017Q1

REPORT INFORMATION
  Report Type: Spontaneous
  Country: US (occurrence: US)
  Receive Date: 20170328
  Receipt Date: 20170328
  Transmission Date: 20170429
  Serious: Yes (Disabling)
  Sender: FDA-Public Use
  Company Number: None

PATIENT
  Age: 69 Year
  Sex: Male
  Weight: 108 kg

DRUGS (2)
  1. ESIDRIX [Suspect]
     Active Substance: HYDROCHLOROTHIAZIDE
  2. GLEEVEC [Suspect]
     Active Substance: IMATINIB MESYLATE

REACTIONS (1)
  - Dry eye [None]

NARRATIVE: CASE EVENT DATE: 19450103
